FAERS Safety Report 16006532 (Version 1)
Quarter: 2019Q1

REPORT INFORMATION
  Report Type: Spontaneous
  Country: US (occurrence: US)
  Receive Date: 20190226
  Receipt Date: 20190226
  Transmission Date: 20190418
  Serious: No
  Sender: FDA-Public Use
  Company Number: US-FERRINGPH-2018FE05724

PATIENT
  Age: 9 Year
  Sex: Male
  Weight: 34 kg

DRUGS (3)
  1. DESMOPRESSIN [Suspect]
     Active Substance: DESMOPRESSIN
     Indication: ENURESIS
     Dosage: 2 SPRAYS IN 1 NOSTRIL AT BEDTIME
     Route: 045
     Dates: start: 20180928
  2. DESMOPRESSIN [Suspect]
     Active Substance: DESMOPRESSIN
     Dosage: 1 SPRAY IN ONE NOSTRIL NIGHTLY
     Route: 045
     Dates: start: 201705, end: 201801
  3. DESMOPRESSIN [Suspect]
     Active Substance: DESMOPRESSIN
     Indication: ENURESIS
     Dosage: 2 SPRAYS IN ONE NOSTRIL AT BEDTIME
     Route: 045
     Dates: start: 201805

REACTIONS (4)
  - Drug effect decreased [Not Recovered/Not Resolved]
  - Product use in unapproved indication [Not Recovered/Not Resolved]
  - Off label use [Not Recovered/Not Resolved]
  - Epistaxis [Recovered/Resolved]

NARRATIVE: CASE EVENT DATE: 201705
